FAERS Safety Report 8315005 (Version 4)
Quarter: 2019Q4

REPORT INFORMATION
  Report Type: Spontaneous
  Country: US (occurrence: US)
  Receive Date: 20111229
  Receipt Date: 20191105
  Transmission Date: 20200122
  Serious: Yes (Hospitalization, Other)
  Sender: FDA-Public Use
  Company Number: US-SANOFI-AVENTIS-2011SA084870

PATIENT
  Age: 73 Year
  Sex: Female

DRUGS (7)
  1. APIDRA [Suspect]
     Active Substance: INSULIN GLULISINE
     Indication: DIABETES MELLITUS
     Dosage: 8 U, BEFORE EVERY MEAL
     Route: 058
  2. NOVOLOG [Suspect]
     Active Substance: INSULIN ASPART
     Indication: PRODUCT USED FOR UNKNOWN INDICATION
     Dosage: 18 U, BEFORE MEAL
     Route: 065
  3. TOUJEO MAX [Suspect]
     Active Substance: INSULIN GLARGINE
     Indication: DIABETES MELLITUS
     Dosage: MORNING TIME
     Route: 058
     Dates: start: 2017
  4. LANTUS [Suspect]
     Active Substance: INSULIN GLARGINE
     Indication: TYPE 2 DIABETES MELLITUS
     Dosage: 35 DF,QD
     Route: 058
     Dates: start: 200911
  5. SOLOSTAR [Suspect]
     Active Substance: DEVICE
     Indication: TYPE 2 DIABETES MELLITUS
     Dates: start: 2009
  6. LANTUS [Suspect]
     Active Substance: INSULIN GLARGINE
     Dosage: 22 U, DAILY AT NIGHT TIME
     Route: 058
  7. APIDRA [Suspect]
     Active Substance: INSULIN GLULISINE
     Dosage: UNK, TID
     Route: 058

REACTIONS (8)
  - Intraocular pressure increased [Recovered/Resolved with Sequelae]
  - Blood glucose increased [Unknown]
  - Cataract [Recovered/Resolved]
  - Blindness unilateral [Not Recovered/Not Resolved]
  - Syncope [Unknown]
  - Product dose omission [Unknown]
  - Malaise [Unknown]
  - Glaucoma [Not Recovered/Not Resolved]

NARRATIVE: CASE EVENT DATE: 2010
